FAERS Safety Report 8842176 (Version 3)
Quarter: 2013Q4

REPORT INFORMATION
  Report Type: Spontaneous
  Country: CR (occurrence: CR)
  Receive Date: 20121016
  Receipt Date: 20131017
  Transmission Date: 20140711
  Serious: Yes (Other)
  Sender: FDA-Public Use
  Company Number: PHHY2012CR090861

PATIENT
  Sex: Male

DRUGS (2)
  1. CATAFLAM [Suspect]
     Dosage: UNK UKN, UNK
  2. LORATADINE [Concomitant]
     Dosage: UNK UKN, UNK

REACTIONS (1)
  - Blood creatine phosphokinase increased [Unknown]
